FAERS Safety Report 21770174 (Version 1)
Quarter: 2022Q4

REPORT INFORMATION
  Report Type: Spontaneous
  Country: US (occurrence: US)
  Receive Date: 20221223
  Receipt Date: 20221223
  Transmission Date: 20230113
  Serious: No
  Sender: FDA-Public Use
  Company Number: US-SA-SAC20221221000921

PATIENT
  Sex: Female

DRUGS (10)
  1. DUPIXENT [Suspect]
     Active Substance: DUPILUMAB
     Indication: Sinusitis
     Dosage: 300 MG, QOW
     Route: 058
  2. BUDESONIDE [Concomitant]
     Active Substance: BUDESONIDE
     Dosage: 0.5MG/2ML
  3. HYDRALAZINE [Concomitant]
     Active Substance: HYDRALAZINE HYDROCHLORIDE
     Dosage: 25MG
  4. LORAZEPAM [Concomitant]
     Active Substance: LORAZEPAM
     Dosage: 1MGS
  5. NYSTATIN [Concomitant]
     Active Substance: NYSTATIN
     Dosage: 100000UNIT/M
  6. PANTOPRAZOLE [Concomitant]
     Active Substance: PANTOPRAZOLE
  7. TERBINAFINE [Concomitant]
     Active Substance: TERBINAFINE
     Dosage: 250MG
  8. XARELTO [Concomitant]
     Active Substance: RIVAROXABAN
     Dosage: UNK
  9. BETAMETHASONE [Concomitant]
     Active Substance: BETAMETHASONE
     Dosage: UNK %
  10. SPIRONOLACTONE [Concomitant]
     Active Substance: SPIRONOLACTONE
     Dosage: UNK MG

REACTIONS (7)
  - Injection site pain [Unknown]
  - Abdominal pain upper [Unknown]
  - Nasal congestion [Unknown]
  - Headache [Unknown]
  - Gait inability [Unknown]
  - Blood pressure abnormal [Unknown]
  - Fall [Unknown]
